FAERS Safety Report 5959851-4 (Version None)
Quarter: 2008Q4

REPORT INFORMATION
  Report Type: 
  Country: None (occurrence: None)
  Receive Date: 20081120
  Receipt Date: 20081117
  Transmission Date: 20090506
  Serious: Yes (Other)
  Sender: FDA-Public Use
  Company Number: B0546723A

PATIENT
  Age: 36 Year
  Sex: Male

DRUGS (12)
  1. ZELITREX [Suspect]
     Indication: DRUG USE FOR UNKNOWN INDICATION
     Route: 065
  2. RAPAMUNE [Suspect]
     Indication: GRAFT VERSUS HOST DISEASE
     Dosage: 1MG PER DAY
     Dates: start: 20080523, end: 20080621
  3. FURIX [Suspect]
     Indication: DRUG USE FOR UNKNOWN INDICATION
     Route: 065
  4. CIPROFLOXACIN HCL [Suspect]
     Indication: DRUG USE FOR UNKNOWN INDICATION
     Route: 048
  5. VFEND [Suspect]
     Indication: DRUG USE FOR UNKNOWN INDICATION
     Route: 065
  6. PANTOPRAZOLE SODIUM [Suspect]
     Indication: DRUG USE FOR UNKNOWN INDICATION
     Route: 065
  7. PANTOPRAZOLE SODIUM [Suspect]
     Route: 065
  8. DAPSON [Suspect]
     Indication: DRUG USE FOR UNKNOWN INDICATION
     Route: 065
  9. INNOHEP [Concomitant]
     Indication: THROMBOPHLEBITIS
     Dosage: 9000IU PER DAY
     Route: 058
  10. PLENDIL [Concomitant]
     Indication: HYPERTENSION
     Dates: start: 20070716, end: 20080423
  11. PREDNISOLONE [Concomitant]
     Indication: GRAFT VERSUS HOST DISEASE
     Dosage: 35MG PER DAY
     Dates: start: 20070403
  12. NEORECORMON [Concomitant]
     Dosage: 6000IU WEEKLY
     Route: 058

REACTIONS (7)
  - BLISTER [None]
  - EPIDERMOLYSIS [None]
  - PYREXIA [None]
  - RASH [None]
  - SKIN EXFOLIATION [None]
  - STOMATITIS [None]
  - TOXIC EPIDERMAL NECROLYSIS [None]
